FAERS Safety Report 8953491 (Version 2)
Quarter: 2012Q4

REPORT INFORMATION
  Report Type: 
  Country: GE (occurrence: GE)
  Receive Date: 20121206
  Receipt Date: 20121219
  Transmission Date: 20130627
  Serious: Yes (Life-Threatening, Hospitalization, Other)
  Sender: FDA-Public Use
  Company Number: GE-GLAXOSMITHKLINE-B0841685A

PATIENT
  Age: 63 Year
  Sex: Female
  Weight: 62 kg

DRUGS (1)
  1. ZANTAC [Suspect]
     Indication: PREMEDICATION
     Dosage: 50MG per day
     Route: 042
     Dates: start: 20120918, end: 20120918

REACTIONS (9)
  - Anaphylactic shock [Recovered/Resolved]
  - Cyanosis [Unknown]
  - Nausea [Unknown]
  - Vomiting [Unknown]
  - Tremor [Unknown]
  - Back pain [Unknown]
  - Face oedema [Unknown]
  - Dyspnoea [Unknown]
  - Bronchospasm [Unknown]
